FAERS Safety Report 6134993-1 (Version None)
Quarter: 2009Q1

REPORT INFORMATION
  Report Type: 
  Country: None (occurrence: None)
  Receive Date: 20090327
  Receipt Date: 20090326
  Transmission Date: 20090719
  Serious: Yes (Death, Other)
  Sender: FDA-Public Use
  Company Number: US-ASTRAZENECA-2008UW24334

PATIENT
  Age: 610 Month
  Sex: Female
  Weight: 83.9 kg

DRUGS (5)
  1. SEROQUEL [Suspect]
     Indication: MILD MENTAL RETARDATION
     Route: 048
     Dates: start: 20030401, end: 20070801
  2. SEROQUEL [Suspect]
     Indication: SCHIZOPHRENIA
     Route: 048
     Dates: start: 20030401, end: 20070801
  3. IMIPRAMINE [Concomitant]
     Dates: start: 19940710, end: 19990808
  4. IMIPRAMINE [Concomitant]
     Dates: start: 20021028, end: 20040505
  5. THIORIDAZINE HCL [Concomitant]
     Dates: start: 20020227, end: 20030428

REACTIONS (8)
  - ARTERIOSCLEROSIS CORONARY ARTERY [None]
  - BRAIN NEOPLASM [None]
  - CARDIAC FAILURE CONGESTIVE [None]
  - DIABETES MELLITUS [None]
  - HYPERPROLACTINAEMIA [None]
  - HYPERTENSION [None]
  - KNEE ARTHROPLASTY [None]
  - PITUITARY TUMOUR [None]
